FAERS Safety Report 4358033-X (Version None)
Quarter: 2004Q2

REPORT INFORMATION
  Report Type: 
  Country: None (occurrence: None)
  Receive Date: 20040513
  Receipt Date: 20040506
  Transmission Date: 20050107
  Serious: Yes (Hospitalization)
  Sender: FDA-Public Use
  Company Number: 04-05-0649

PATIENT
  Age: 50 Year
  Sex: Female

DRUGS (2)
  1. CLOZAPINE [Suspect]
     Indication: SCHIZOAFFECTIVE DISORDER
     Dosage: 300-700MG QD ORAL
     Route: 048
     Dates: start: 20030301
  2. RISPERDAL [Concomitant]

REACTIONS (4)
  - DIZZINESS [None]
  - FALL [None]
  - MEDICATION ERROR [None]
  - SYNCOPE [None]
